FAERS Safety Report 20093729 (Version 1)
Quarter: 2021Q4

REPORT INFORMATION
  Report Type: Spontaneous
  Country: US (occurrence: US)
  Receive Date: 20211121
  Receipt Date: 20211121
  Transmission Date: 20220304
  Serious: No
  Sender: FDA-Public Use
  Company Number: US-JNJFOC-20211120407

PATIENT
  Age: 6 Year
  Sex: Male

DRUGS (3)
  1. RISPERDAL [Suspect]
     Active Substance: RISPERIDONE
     Indication: Psychotic disorder
     Dosage: 0.25 MG TABLET IN THE MORNING AND 0.50 MG AT NIGHT
     Route: 048
     Dates: start: 20070904, end: 20070917
  2. RISPERDAL [Suspect]
     Active Substance: RISPERIDONE
     Dosage: 0.25 MG TABLET IN THE MORNING AND 0.75 MG AT NIGHT
     Route: 048
     Dates: start: 20070917
  3. RISPERDAL [Suspect]
     Active Substance: RISPERIDONE
     Route: 048
     Dates: end: 20100611

REACTIONS (2)
  - Somnolence [Unknown]
  - Weight increased [Unknown]

NARRATIVE: CASE EVENT DATE: 20070904
